FAERS Safety Report 16139250 (Version 1)
Quarter: 2019Q2

REPORT INFORMATION
  Report Type: Spontaneous
  Country: FR (occurrence: FR)
  Receive Date: 20190401
  Receipt Date: 20190401
  Transmission Date: 20190711
  Serious: Yes (Hospitalization, Other)
  Sender: FDA-Public Use
  Company Number: FR-TEVA-2019-FR-1029934

PATIENT
  Age: 19 Year
  Sex: Male

DRUGS (4)
  1. KLIPAL CODEINE [Suspect]
     Active Substance: ACETAMINOPHEN\CODEINE PHOSPHATE
     Route: 065
  2. EUPHON (CODEINE\SODIUM FORMATE\ACONITUM NAPELLUS TINCTURE\SISYMBRIUM OFFICINALE SYRUP) [Suspect]
     Active Substance: CODEINE\SISYMBRIUM OFFICINALE WHOLE
     Route: 065
  3. CHLORHYDRATE DE TRAMADOL [Suspect]
     Active Substance: TRAMADOL HYDROCHLORIDE
     Dosage: 800 MILLIGRAM DAILY;
     Route: 048
  4. IZALGI [Suspect]
     Active Substance: ACETAMINOPHEN\OPIUM
     Route: 065

REACTIONS (2)
  - Drug dependence [Recovered/Resolved]
  - Overdose [Recovered/Resolved]
